FAERS Safety Report 12456074 (Version 1)
Quarter: 2016Q2

REPORT INFORMATION
  Report Type: Spontaneous
  Country: HR (occurrence: HR)
  Receive Date: 20160610
  Receipt Date: 20160610
  Transmission Date: 20160815
  Serious: Yes (Other)
  Sender: FDA-Public Use
  Company Number: HR-009507513-1606HRV003549

PATIENT
  Age: 68 Year
  Sex: Male

DRUGS (7)
  1. RISBON [Concomitant]
     Active Substance: RISEDRONIC ACID
  2. JANUVIA [Suspect]
     Active Substance: SITAGLIPTIN PHOSPHATE
     Dosage: UNK
     Route: 048
     Dates: start: 20160516, end: 20160523
  3. GLICLADA [Concomitant]
     Active Substance: GLICLAZIDE
  4. AMPRIL [Concomitant]
  5. GLUFORMIN [Concomitant]
     Active Substance: METFORMIN HYDROCHLORIDE
     Dosage: 2 DF, UNK
  6. NEBIVOLOL. [Concomitant]
     Active Substance: NEBIVOLOL
  7. ATORDAPIN [Concomitant]

REACTIONS (2)
  - Thromboangiitis obliterans [Unknown]
  - Myalgia [Unknown]

NARRATIVE: CASE EVENT DATE: 201605
